FAERS Safety Report 21792392 (Version 1)
Quarter: 2022Q4

REPORT INFORMATION
  Report Type: Spontaneous
  Country: JP (occurrence: JP)
  Receive Date: 20221229
  Receipt Date: 20221229
  Transmission Date: 20230113
  Serious: Yes (Other)
  Sender: FDA-Public Use
  Company Number: JP-ASTELLAS-2022JP018996

PATIENT
  Age: 6 Year
  Weight: 20 kg

DRUGS (6)
  1. PROGRAF [Suspect]
     Active Substance: TACROLIMUS
     Indication: Myasthenia gravis
     Dosage: 1.5 MG/DAY, UNKNOWN FREQ.
     Route: 048
     Dates: start: 202202
  2. PROGRAF [Suspect]
     Active Substance: TACROLIMUS
     Dosage: 2 MG/DAY, UNKNOWN FREQ.
     Route: 048
     Dates: start: 202204
  3. PROGRAF [Suspect]
     Active Substance: TACROLIMUS
     Dosage: 2.5 MG, ONCE DAILY, AFTER DINNER
     Route: 048
     Dates: start: 202205
  4. PROGRAF [Suspect]
     Active Substance: TACROLIMUS
     Dosage: 2.4 MG OR 2.5 MG, ONCE DAILY, AFTER DINNER
     Route: 048
     Dates: start: 202205
  5. PROGRAF [Suspect]
     Active Substance: TACROLIMUS
     Dosage: 2.4 MG OR 2.5 MG, ONCE DAILY, BEFORE DINNER
     Route: 048
     Dates: start: 202205, end: 202211
  6. PREDONINE [Concomitant]
     Active Substance: PREDNISOLONE
     Indication: Product used for unknown indication
     Dosage: 10 MG/DAY, UNKNOWN FREQ.
     Route: 048

REACTIONS (4)
  - Myasthenia gravis [Unknown]
  - Drug level decreased [Unknown]
  - Off label use [Unknown]
  - Treatment noncompliance [Unknown]

NARRATIVE: CASE EVENT DATE: 20220201
